FAERS Safety Report 10623020 (Version 3)
Quarter: 2015Q2

REPORT INFORMATION
  Report Type: Spontaneous
  Country: US (occurrence: US)
  Receive Date: 20141203
  Receipt Date: 20150414
  Transmission Date: 20150821
  Serious: Yes (Other)
  Sender: FDA-Public Use
  Company Number: US-GLAXOSMITHKLINE-US2014GSK029889

PATIENT
  Age: 76 Year
  Sex: Female

DRUGS (12)
  1. BUPROPION [Concomitant]
     Active Substance: BUPROPION
  2. PANTOPRAZOLE [Concomitant]
     Active Substance: PANTOPRAZOLE SODIUM
  3. BREO ELLIPTA [Suspect]
     Active Substance: FLUTICASONE FUROATE\VILANTEROL TRIFENATATE
     Indication: CHRONIC OBSTRUCTIVE PULMONARY DISEASE
     Dosage: 1 PUFF(S), QD
     Route: 055
     Dates: start: 20141005
  4. VALSARTAN. [Concomitant]
     Active Substance: VALSARTAN
  5. TAMSULOSIN [Concomitant]
     Active Substance: TAMSULOSIN
  6. ATENOLOL. [Concomitant]
     Active Substance: ATENOLOL
  7. LEVOTHYROXINE [Concomitant]
     Active Substance: LEVOTHYROXINE
  8. CITALOPRAM [Concomitant]
     Active Substance: CITALOPRAM HYDROBROMIDE
  9. MONTELUKAST [Concomitant]
     Active Substance: MONTELUKAST SODIUM
  10. ESTRADIOL. [Concomitant]
     Active Substance: ESTRADIOL
  11. GEMFIBROZIL. [Concomitant]
     Active Substance: GEMFIBROZIL
  12. CLOPIDOGREL [Concomitant]
     Active Substance: CLOPIDOGREL BISULFATE

REACTIONS (2)
  - Blood glucose increased [Recovering/Resolving]
  - Hyperglycaemia [Recovering/Resolving]

NARRATIVE: CASE EVENT DATE: 20141005
